FAERS Safety Report 8164005-X (Version None)
Quarter: 2012Q1

REPORT INFORMATION
  Report Type: 
  Country: None (occurrence: None)
  Receive Date: 20120224
  Receipt Date: 20120213
  Transmission Date: 20120608
  Serious: Yes (Other)
  Sender: FDA-Public Use
  Company Number: CHPA2012US002562

PATIENT
  Age: 76 Year
  Sex: Male

DRUGS (1)
  1. MAALOX ANTACID LIQUID - UNKNOWN [Suspect]
     Dosage: 3 TSP, QH
     Route: 048

REACTIONS (4)
  - VOMITING [None]
  - MALAISE [None]
  - INCORRECT DRUG ADMINISTRATION DURATION [None]
  - HAEMORRHOIDS [None]
